FAERS Safety Report 7901042-1 (Version None)
Quarter: 2011Q4

REPORT INFORMATION
  Report Type: 
  Country: None (occurrence: None)
  Receive Date: 20111108
  Receipt Date: 20111103
  Transmission Date: 20120403
  Serious: Yes (Other)
  Sender: FDA-Public Use
  Company Number: US-PFIZER INC-2011269971

PATIENT
  Sex: Female
  Weight: 102.04 kg

DRUGS (7)
  1. SYNTHROID [Concomitant]
     Indication: HYPOTHYROIDISM
     Dosage: 150 UG, UNK
  2. OMEPRAZOLE [Concomitant]
     Indication: GASTROOESOPHAGEAL REFLUX DISEASE
     Dosage: 20 MG, UNK
  3. CLONAZEPAM [Concomitant]
     Indication: ANXIETY
     Dosage: 1 MG, UNK
  4. WARFARIN [Concomitant]
     Indication: PULMONARY EMBOLISM
     Dosage: UNK
  5. DILTIAZEM [Concomitant]
     Indication: HYPERTENSION
     Dosage: 180 MG, UNK
  6. LATANOPROST [Suspect]
     Indication: GLAUCOMA
     Dosage: UNK
     Route: 047
     Dates: start: 20100101
  7. LAMICTAL [Concomitant]
     Indication: MOOD SWINGS
     Dosage: 150 MG, UNK

REACTIONS (2)
  - ARTHRALGIA [None]
  - VISUAL ACUITY REDUCED [None]
